FAERS Safety Report 18908153 (Version 1)
Quarter: 2021Q1

REPORT INFORMATION
  Report Type: Spontaneous
  Country: US (occurrence: US)
  Receive Date: 20210218
  Receipt Date: 20210218
  Transmission Date: 20210420
  Serious: Yes (Hospitalization)
  Sender: FDA-Public Use
  Company Number: US-ASTRAZENECA-2021A051245

PATIENT
  Age: 991 Month
  Sex: Male
  Weight: 81.6 kg

DRUGS (1)
  1. LOKELMA [Suspect]
     Active Substance: SODIUM ZIRCONIUM CYCLOSILICATE
     Indication: RENAL FAILURE
     Route: 048

REACTIONS (2)
  - Weight increased [Recovered/Resolved]
  - Dyspnoea [Recovered/Resolved]
